FAERS Safety Report 14326337 (Version 2)
Quarter: 2017Q4

REPORT INFORMATION
  Report Type: Report from Study
  Country: None (occurrence: US)
  Receive Date: 20171227
  Receipt Date: 20171228
  Transmission Date: 20180321
  Serious: Yes (Hospitalization, Other)
  Sender: FDA-Public Use
  Company Number: US-ABBVIE-13P-163-1129991-00

PATIENT
  Age: 68 Year
  Sex: Female
  Weight: 95.34 kg

DRUGS (2)
  1. HUMIRA [Suspect]
     Active Substance: ADALIMUMAB
     Indication: RHEUMATOID ARTHRITIS
     Route: 058
     Dates: start: 20130802
  2. HUMIRA [Suspect]
     Active Substance: ADALIMUMAB
     Indication: CROHN^S DISEASE
     Route: 058
     Dates: start: 2010, end: 20130701

REACTIONS (12)
  - Haematoma [Recovered/Resolved]
  - Arthralgia [Recovered/Resolved]
  - Headache [Recovered/Resolved]
  - Concussion [Recovered/Resolved]
  - Cerebrovascular accident [Unknown]
  - Gait disturbance [Unknown]
  - Fall [Recovered/Resolved]
  - Memory impairment [Unknown]
  - Arthralgia [Recovered/Resolved]
  - Cartilage injury [Recovered/Resolved]
  - Grip strength decreased [Unknown]
  - Pain [Recovered/Resolved]

NARRATIVE: CASE EVENT DATE: 201207
